FAERS Safety Report 25288165 (Version 1)
Quarter: 2025Q2

REPORT INFORMATION
  Report Type: Spontaneous
  Country: US (occurrence: None)
  Receive Date: 20250509
  Receipt Date: 20250509
  Transmission Date: 20250716
  Serious: No
  Sender: FDA-CTU
  Company Number: None

PATIENT
  Sex: Male

DRUGS (2)
  1. ISOTRETINOIN [Suspect]
     Active Substance: ISOTRETINOIN
     Indication: Acne
     Dosage: OTHER QUANTITY : 2 CAPSULE(S);?FREQUENCY : DAILY;?
     Route: 048
  2. Fluticasone furoate (Flonase) [Concomitant]

REACTIONS (6)
  - Urethral atresia [None]
  - Urethral discharge [None]
  - Blood urine present [None]
  - Urethral obstruction [None]
  - Dysuria [None]
  - Penis disorder [None]
